FAERS Safety Report 15435702 (Version 2)
Quarter: 2018Q4

REPORT INFORMATION
  Report Type: Spontaneous
  Country: CH (occurrence: CH)
  Receive Date: 20180927
  Receipt Date: 20181005
  Transmission Date: 20190204
  Serious: Yes (Hospitalization, Other)
  Sender: FDA-Public Use
  Company Number: CH-SA-2018SA261343

PATIENT
  Age: 73 Year
  Sex: Male

DRUGS (6)
  1. HYDROCHLOROTHIAZIDE/IRBESARTAN [Suspect]
     Active Substance: HYDROCHLOROTHIAZIDE\IRBESARTAN
     Indication: HYPERTENSION
     Dosage: 150 MG, QD
     Route: 048
  2. LERCANIDIPIN SANDOZ [Concomitant]
     Active Substance: LERCANIDIPINE HYDROCHLORIDE
     Dosage: 10 MG, Q12H
     Route: 048
  3. NOVALGIN (METAMIZOLE SODIUM) [Suspect]
     Active Substance: METAMIZOLE SODIUM
     Indication: PROCEDURAL PAIN
     Dosage: 1000 MG, Q6H
     Route: 048
     Dates: start: 20180704, end: 20180910
  4. CEFUROXIM SANDOZ [CEFUROXIME AXETIL] [Concomitant]
     Active Substance: CEFUROXIME AXETIL
     Dosage: 500 MG, Q12H
     Route: 048
     Dates: start: 20180910, end: 20180911
  5. PARACETAMOL/TRAMADOL HYDROCHLORIDE [Suspect]
     Active Substance: ACETAMINOPHEN\TRAMADOL HYDROCHLORIDE
     Indication: PROCEDURAL PAIN
     Dosage: 325 MG, Q6H
     Route: 048
     Dates: start: 20180704, end: 20180910
  6. SOLMUCALM [Concomitant]
     Active Substance: ACETYLCYSTEINE\CHLORPHENIRAMINE MALEATE
     Dosage: UNK UNK, Q6H
     Route: 048
     Dates: start: 20180910, end: 20180911

REACTIONS (2)
  - Hepatocellular injury [Recovering/Resolving]
  - Liver disorder [Recovering/Resolving]

NARRATIVE: CASE EVENT DATE: 201809
